FAERS Safety Report 24269770 (Version 1)
Quarter: 2024Q3

REPORT INFORMATION
  Report Type: Spontaneous
  Country: US (occurrence: None)
  Receive Date: 20240830
  Receipt Date: 20240830
  Transmission Date: 20241016
  Serious: Yes (Life-Threatening)
  Sender: Public
  Company Number: None

PATIENT
  Age: 75 Year
  Sex: Female

DRUGS (22)
  1. XOLAIR [Suspect]
     Active Substance: OMALIZUMAB
     Indication: Asthma
     Dosage: FREQUENCY : WEEKLY;?
     Route: 058
     Dates: start: 20240826, end: 20240826
  2. BANOPHEN (DIPHENHYDRAMINE [Concomitant]
  3. EPINEPHRINE [Concomitant]
  4. ANASTROZOLE [Concomitant]
  5. EPINEPHRINE [Concomitant]
     Active Substance: EPINEPHRINE
  6. LATANOPROST OPHTH SOLN [Concomitant]
  7. TRULICITY [Concomitant]
  8. ONE TOUCH DELICA PLUS [Concomitant]
  9. ONE TOUCH VERIO TEST STRIPS [Concomitant]
  10. ONE TOUCH VERIO REFLECT KIT [Concomitant]
  11. ALBUTEROL [Concomitant]
     Active Substance: ALBUTEROL
  12. ALBUTEROL [Concomitant]
     Active Substance: ALBUTEROL
  13. LIDOCAINE 5% PATCH [Concomitant]
  14. ALBUTEROL 0.83% [Concomitant]
  15. LIDOCAINE 5% [Concomitant]
     Active Substance: LIDOCAINE
  16. ALBUTEROL [Concomitant]
     Active Substance: ALBUTEROL
  17. DORZOLAMIDE [Concomitant]
     Active Substance: DORZOLAMIDE
  18. TRAMADOL 50MG [Concomitant]
  19. LIDOCAINE 5% PATCH [Concomitant]
  20. TRAMADOL HYDROCHLORIDE [Concomitant]
     Active Substance: TRAMADOL HYDROCHLORIDE
  21. LOSARTAN/HCTZ 100/25MG TABLETS [Concomitant]
  22. CYCLOBENZAPRINE 5MG TABLETS [Concomitant]

REACTIONS (4)
  - Dry throat [None]
  - Throat irritation [None]
  - Swollen tongue [None]
  - Therapy cessation [None]

NARRATIVE: CASE EVENT DATE: 20240826
